FAERS Safety Report 7274365 (Version 5)
Quarter: 2017Q3

REPORT INFORMATION
  Report Type: Report from Study
  Country: JP (occurrence: JP)
  Receive Date: 20100209
  Receipt Date: 20170929
  Transmission Date: 20171128
  Serious: Yes (Death, Life-Threatening, Hospitalization, Other)
  Sender: FDA-Public Use
  Company Number: JP-BRISTOL-MYERS SQUIBB COMPANY-14706568

PATIENT
  Age: 25 Year
  Sex: Male
  Weight: 57 kg

DRUGS (17)
  1. DENOSINE                           /00784201/ [Concomitant]
     Active Substance: GANCICLOVIR
     Indication: PRODUCT USED FOR UNKNOWN INDICATION
     Dosage: FORM:INJ;50MG(18JUL09-28JUL09).
     Route: 042
     Dates: start: 20090630, end: 20090709
  2. AMBISOME [Concomitant]
     Active Substance: AMPHOTERICIN B
     Indication: PRODUCT USED FOR UNKNOWN INDICATION
     Dosage: FORM:INJ
     Route: 042
     Dates: start: 20090718, end: 20090728
  3. SANDIMMUN [Concomitant]
     Active Substance: CYCLOSPORINE
     Indication: GRAFT VERSUS HOST DISEASE
     Dosage: UNK
     Route: 065
     Dates: start: 20090709, end: 20090716
  4. ITRIZOLE [Suspect]
     Active Substance: ITRACONAZOLE
     Indication: PROPHYLAXIS
     Dosage: CAPSULE;400-200MG/DAY(06JUL-16JUL09)INJ.
     Route: 048
     Dates: start: 20090606, end: 20090716
  5. OMEGACIN [Concomitant]
     Active Substance: BIAPENEM
     Indication: PRODUCT USED FOR UNKNOWN INDICATION
     Dosage: FORM:INJ
     Route: 042
     Dates: start: 20090710, end: 20090716
  6. NEORAL [Suspect]
     Active Substance: CYCLOSPORINE
     Indication: PROPHYLAXIS
     Dosage: 09JUL-16JUL09.  125MG/DAY  SANDIMMUN:INJ:50MG/DY:09JUL-16JUL09
     Route: 048
     Dates: start: 20090414, end: 20090708
  7. MAXIPIME [Suspect]
     Active Substance: CEFEPIME HYDROCHLORIDE
     Indication: PRODUCT USED FOR UNKNOWN INDICATION
     Dosage: 4 G, INTERMITTENT
     Route: 042
     Dates: start: 20090424, end: 20090427
  8. FAROM [Suspect]
     Active Substance: FAROPENEM SODIUM
     Indication: PRODUCT USED FOR UNKNOWN INDICATION
     Dosage: 150 MG, INTERMITTENT
     Route: 048
     Dates: start: 20090428, end: 20090501
  9. BACTRAMIN [Suspect]
     Active Substance: SULFAMETHOXAZOLE\TRIMETHOPRIM
     Indication: ANTIBIOTIC PROPHYLAXIS
     Dosage: 1DF=1TAB;800MG/DAY(02JUL-18JUL09)INJ.
     Route: 048
     Dates: start: 20090414, end: 20090716
  10. BENAMBAX [Concomitant]
     Active Substance: PENTAMIDINE
     Indication: PRODUCT USED FOR UNKNOWN INDICATION
     Dosage: FORM:INJ
     Route: 042
     Dates: start: 20090718, end: 20090728
  11. FOSCAVIR [Suspect]
     Active Substance: FOSCARNET SODIUM
     Indication: PRODUCT USED FOR UNKNOWN INDICATION
     Dosage: FORM:INJ1 DF= 10 UNIT NOS
     Route: 041
     Dates: start: 20090710, end: 20090716
  12. CEFTAZIDIME. [Concomitant]
     Active Substance: CEFTAZIDIME
     Indication: PRODUCT USED FOR UNKNOWN INDICATION
     Dosage: FORM:INJ
     Route: 042
     Dates: start: 20090630, end: 20090710
  13. DASATINIB [Suspect]
     Active Substance: DASATINIB
     Indication: ACUTE LYMPHOCYTIC LEUKAEMIA
     Dosage: 70 MG, BID
     Route: 048
     Dates: start: 20090416, end: 20090708
  14. SOLU-MEDROL [Concomitant]
     Active Substance: METHYLPREDNISOLONE SODIUM SUCCINATE
     Indication: ACUTE LYMPHOCYTIC LEUKAEMIA
     Dosage: FORM:INJ
     Route: 042
     Dates: start: 20090711, end: 20090728
  15. TAZOCIN [Concomitant]
     Active Substance: PIPERACILLIN SODIUM\TAZOBACTAM SODIUM
     Indication: PRODUCT USED FOR UNKNOWN INDICATION
     Dosage: 6.75 MG, QD
     Route: 042
     Dates: start: 20090720, end: 20090724
  16. MEROPEN [Concomitant]
     Active Substance: MEROPENEM
     Indication: PRODUCT USED FOR UNKNOWN INDICATION
     Dosage: FORM:INJ
     Route: 042
     Dates: start: 20090725, end: 20090728
  17. PREDONINE [Concomitant]
     Active Substance: PREDNISOLONE
     Indication: ACUTE LYMPHOCYTIC LEUKAEMIA
     Dosage: FORM:TABS 55MG 5-18JUN09, 50MG 19-25JUN, 45MG 26-28JUN, 40MG 29JUN-3JUL, 35MG 4-8JUL, 30MG 9-0JUL09
     Route: 048
     Dates: start: 20090605, end: 20090710

REACTIONS (26)
  - Pulmonary haemorrhage [Fatal]
  - Diarrhoea [Recovered/Resolved]
  - Malignant neoplasm progression [Fatal]
  - Hepatic function abnormal [Not Recovered/Not Resolved]
  - Pneumonia viral [Not Recovered/Not Resolved]
  - Enterocolitis [Not Recovered/Not Resolved]
  - Gastrointestinal haemorrhage [Unknown]
  - Neutrophil count decreased [Not Recovered/Not Resolved]
  - Anaemia [Not Recovered/Not Resolved]
  - Pneumonia cytomegaloviral [Not Recovered/Not Resolved]
  - Pyrexia [Not Recovered/Not Resolved]
  - Liver function test increased [Recovering/Resolving]
  - Eyelid oedema [Recovered/Resolved]
  - Renal impairment [Not Recovered/Not Resolved]
  - Bronchopulmonary aspergillosis [Not Recovered/Not Resolved]
  - Pericardial effusion [Recovering/Resolving]
  - White blood cell count decreased [Not Recovered/Not Resolved]
  - Platelet count decreased [Not Recovered/Not Resolved]
  - Graft versus host disease [Not Recovered/Not Resolved]
  - Pleural effusion [Recovered/Resolved]
  - Generalised oedema [Recovered/Resolved]
  - Interstitial lung disease [Not Recovered/Not Resolved]
  - Pneumocystis jirovecii pneumonia [Not Recovered/Not Resolved]
  - Headache [Not Recovered/Not Resolved]
  - Disseminated intravascular coagulation [Not Recovered/Not Resolved]
  - Oral herpes [Recovering/Resolving]

NARRATIVE: CASE EVENT DATE: 20090417
